FAERS Safety Report 8817340 (Version 1)
Quarter: 2012Q4

REPORT INFORMATION
  Report Type: 
  Country: ES (occurrence: ES)
  Receive Date: 20121004
  Receipt Date: 20121004
  Transmission Date: 20130627
  Serious: Yes (Hospitalization)
  Sender: FDA-Public Use
  Company Number: PHHY2012ES084646

PATIENT
  Age: 31 Year
  Sex: Male

DRUGS (5)
  1. LEVETIRACETAM [Suspect]
     Dosage: 1 g, BID
     Route: 048
  2. DEXAMETHASONE [Concomitant]
     Dosage: 12 mg, UNK
  3. DEXAMETHASONE [Concomitant]
     Dosage: 2 mg, UNK
  4. DEXAMETHASONE [Concomitant]
     Dosage: 6 mg, UNK
  5. DEXAMETHASONE [Concomitant]
     Dosage: 4 mg, UNK

REACTIONS (15)
  - Drug reaction with eosinophilia and systemic symptoms [Recovered/Resolved]
  - Pyrexia [Recovered/Resolved]
  - Dyspnoea [Recovered/Resolved]
  - Blood pressure decreased [Recovered/Resolved]
  - Rales [Recovered/Resolved]
  - Lymphadenopathy [Recovered/Resolved]
  - Cough [Recovered/Resolved]
  - Rash pruritic [Recovered/Resolved]
  - Rash maculo-papular [Recovered/Resolved]
  - Rash erythematous [Recovered/Resolved]
  - Face oedema [Recovered/Resolved]
  - Eye swelling [Recovered/Resolved]
  - Hypoxia [Recovered/Resolved]
  - Hepatic function abnormal [Recovered/Resolved]
  - Lung infiltration [Recovered/Resolved]
